FAERS Safety Report 9557173 (Version 3)
Quarter: 2015Q1

REPORT INFORMATION
  Report Type: Spontaneous
  Country: US (occurrence: US)
  Receive Date: 20130926
  Receipt Date: 20150327
  Transmission Date: 20150721
  Serious: Yes (Disabling, Other)
  Sender: FDA-Public Use
  Company Number: US-009507513-1309USA012797

PATIENT
  Sex: Female

DRUGS (1)
  1. JANUVIA [Suspect]
     Active Substance: SITAGLIPTIN PHOSPHATE
     Dosage: 50 MG, QD
     Route: 048
     Dates: start: 20090330, end: 20120419

REACTIONS (5)
  - Pancreatic carcinoma [Unknown]
  - Splenectomy [Unknown]
  - Hepatic cyst [Unknown]
  - Pancreatectomy [Unknown]
  - Kidney fibrosis [Unknown]

NARRATIVE: CASE EVENT DATE: 20120717
